FAERS Safety Report 6886988-8 (Version None)
Quarter: 2010Q3

REPORT INFORMATION
  Report Type: 
  Country: None (occurrence: None)
  Receive Date: 20100730
  Receipt Date: 20100726
  Transmission Date: 20110219
  Serious: Yes (Death)
  Sender: FDA-Public Use
  Company Number: JP-JNJFOC-20100700069

PATIENT
  Age: 55 Year
  Sex: Male

DRUGS (1)
  1. DUROTEP MT [Suspect]
     Indication: CANCER PAIN
     Route: 062

REACTIONS (2)
  - APPLICATION SITE VESICLES [None]
  - MALIGNANT NEOPLASM PROGRESSION [None]
